FAERS Safety Report 11935241 (Version 3)
Quarter: 2016Q2

REPORT INFORMATION
  Report Type: Spontaneous
  Country: US (occurrence: US)
  Receive Date: 20160121
  Receipt Date: 20160511
  Transmission Date: 20160815
  Serious: Yes (Hospitalization, Other)
  Sender: FDA-Public Use
  Company Number: US-PFIZER INC-2016027786

PATIENT
  Age: 72 Year
  Sex: Male
  Weight: 87.9 kg

DRUGS (4)
  1. REVATIO [Suspect]
     Active Substance: SILDENAFIL CITRATE
     Indication: PULMONARY ARTERIAL HYPERTENSION
     Dosage: 60 MG, 3X/DAY,20 MG TABLET, 3 IN THE MORNING, 3 IN THE AFTERNOON AND 3 AT NIGHT
     Route: 048
  2. TORSEMIDE. [Concomitant]
     Active Substance: TORSEMIDE
     Dosage: TAKES EVERY DAY, DAILY
  3. TRACLEER [Concomitant]
     Active Substance: BOSENTAN
     Indication: PULMONARY ARTERIAL HYPERTENSION
     Dosage: 125 MG, 2X/DAY
     Route: 048
  4. METOLAZONE. [Concomitant]
     Active Substance: METOLAZONE
     Dosage: THREE TIMES A WEEK

REACTIONS (9)
  - Lower limb fracture [Unknown]
  - Muscle spasms [Unknown]
  - Ankle fracture [Unknown]
  - Fall [Unknown]
  - Renal failure [Recovered/Resolved]
  - Cardiac failure [Recovered/Resolved]
  - Product use issue [Unknown]
  - Fluid retention [Recovered/Resolved]
  - Muscular weakness [Not Recovered/Not Resolved]

NARRATIVE: CASE EVENT DATE: 20151029
